FAERS Safety Report 11787653 (Version 2)
Quarter: 2015Q4

REPORT INFORMATION
  Report Type: Report from Study
  Country: BE (occurrence: BE)
  Receive Date: 20151130
  Receipt Date: 20151218
  Transmission Date: 20160305
  Serious: No
  Sender: FDA-Public Use
  Company Number: BE-ABBVIE-15P-013-1399408-00

PATIENT
  Sex: Male

DRUGS (15)
  1. DUODOPA [Suspect]
     Active Substance: CARBIDOPA\LEVODOPA
     Indication: PARKINSON^S DISEASE
     Dosage: AM: 12ML; CD: 5ML/H FOR 16HRS; ED: 5ML
     Route: 050
     Dates: start: 20150323, end: 20150327
  2. DUODOPA [Suspect]
     Active Substance: CARBIDOPA\LEVODOPA
     Dosage: AM=6ML; CD=7ML/H FOR 16HRS; ED=6ML; ND=3.6ML/H FOR 8HRS
     Route: 050
     Dates: start: 20151125, end: 20151210
  3. DUODOPA [Suspect]
     Active Substance: CARBIDOPA\LEVODOPA
     Dosage: AM=8ML; CD=7.3ML/H FOR 16HRS; ED=6ML; ND=3.6ML/H FOR 8HRS
     Route: 050
     Dates: start: 20151210
  4. NOBITEN [Concomitant]
     Indication: PRODUCT USED FOR UNKNOWN INDICATION
     Dosage: 1 TABLET
  5. ZESTRIL [Concomitant]
     Active Substance: LISINOPRIL
     Indication: PRODUCT USED FOR UNKNOWN INDICATION
     Dosage: 1 TABLET
  6. INDAPAMIDE. [Concomitant]
     Active Substance: INDAPAMIDE
     Indication: PRODUCT USED FOR UNKNOWN INDICATION
     Dosage: 1 TABLET
  7. ESCITALOPRAM [Concomitant]
     Active Substance: ESCITALOPRAM OXALATE
     Indication: PRODUCT USED FOR UNKNOWN INDICATION
     Dosage: 1 TABLET
  8. REQUIP [Concomitant]
     Active Substance: ROPINIROLE HYDROCHLORIDE
     Indication: PRODUCT USED FOR UNKNOWN INDICATION
  9. DUODOPA [Suspect]
     Active Substance: CARBIDOPA\LEVODOPA
     Dosage: AM: 9ML; CD: 6ML/H FOR 16HRS;  ED: 6ML
     Route: 050
     Dates: start: 20150331
  10. MOXONIDINE EG [Concomitant]
     Indication: PRODUCT USED FOR UNKNOWN INDICATION
  11. DUODOPA [Suspect]
     Active Substance: CARBIDOPA\LEVODOPA
     Dosage: AM: 4ML, CD: 5.8ML/H FOR 16 HRS; ED: 5.5ML
     Route: 050
     Dates: start: 20150727, end: 20151125
  12. MIRAPEXIN [Suspect]
     Active Substance: PRAMIPEXOLE
     Indication: PRODUCT USED FOR UNKNOWN INDICATION
     Route: 065
  13. DUODOPA [Suspect]
     Active Substance: CARBIDOPA\LEVODOPA
     Route: 050
     Dates: start: 20150521, end: 20150727
  14. DUODOPA [Suspect]
     Active Substance: CARBIDOPA\LEVODOPA
     Dosage: AM: 7ML; CD: 6.5ML/H 16HRS; ND: 4.5ML/H 8HRS; ED: 5ML
     Route: 050
     Dates: start: 20150327, end: 20150331
  15. CRESTOR [Concomitant]
     Active Substance: ROSUVASTATIN CALCIUM
     Indication: PRODUCT USED FOR UNKNOWN INDICATION
     Dosage: 1 TABLET

REACTIONS (3)
  - Dyskinesia [Not Recovered/Not Resolved]
  - On and off phenomenon [Unknown]
  - Therapy change [Unknown]
